FAERS Safety Report 16204837 (Version 1)
Quarter: 2019Q2

REPORT INFORMATION
  Report Type: Spontaneous
  Country: US (occurrence: US)
  Receive Date: 20190416
  Receipt Date: 20190416
  Transmission Date: 20190711
  Serious: Yes (Other)
  Sender: FDA-Public Use
  Company Number: US-PFIZER INC-2019159502

PATIENT
  Age: 56 Year
  Sex: Male
  Weight: 108.8 kg

DRUGS (3)
  1. LEVOTHYROXINE. [Concomitant]
     Active Substance: LEVOTHYROXINE
     Dosage: UNK
  2. LYRICA [Suspect]
     Active Substance: PREGABALIN
     Indication: DIABETIC NEUROPATHY
     Dosage: 150 MG, 2X/DAY
     Route: 048
  3. POTASSIUM [Concomitant]
     Active Substance: POTASSIUM
     Dosage: ONE PILL A WEEK

REACTIONS (5)
  - Drug ineffective [Unknown]
  - Poor quality product administered [Unknown]
  - Product use issue [Unknown]
  - Product complaint [Unknown]
  - Chronic kidney disease [Unknown]
